FAERS Safety Report 10532948 (Version 2)
Quarter: 2014Q4

REPORT INFORMATION
  Report Type: Spontaneous
  Country: US (occurrence: US)
  Receive Date: 20141022
  Receipt Date: 20141029
  Transmission Date: 20150529
  Serious: Yes (Hospitalization)
  Sender: FDA-Public Use
  Company Number: US-UNITED THERAPEUTICS-UNT-2014-009328

PATIENT
  Age: 44 Year
  Sex: Female
  Weight: 64.4 kg

DRUGS (3)
  1. OPSUMIT [Concomitant]
     Active Substance: MACITENTAN
     Indication: PRODUCT USED FOR UNKNOWN INDICATION
     Dosage: UNK
  2. REMODULIN [Suspect]
     Active Substance: TREPROSTINIL
     Indication: PULMONARY HYPERTENSION
  3. REMODULIN [Suspect]
     Active Substance: TREPROSTINIL
     Indication: COR PULMONALE CHRONIC
     Dosage: 0.099 ?G/KG, CONTINUING
     Route: 041
     Dates: start: 20100514

REACTIONS (2)
  - Loss of consciousness [Recovering/Resolving]
  - Right ventricular dysfunction [Unknown]

NARRATIVE: CASE EVENT DATE: 20141011
